FAERS Safety Report 12173013 (Version 1)
Quarter: 2016Q1

REPORT INFORMATION
  Report Type: Spontaneous
  Country: CA (occurrence: CA)
  Receive Date: 20160311
  Receipt Date: 20160311
  Transmission Date: 20160526
  Serious: Yes (Life-Threatening)
  Sender: FDA-Public Use
  Company Number: CA-SYMPLMED PHARMACEUTICALS-2016SYMPLMED000165

PATIENT

DRUGS (5)
  1. ELOXATIN [Suspect]
     Active Substance: OXALIPLATIN
     Indication: ADENOCARCINOMA OF COLON
     Dosage: 85 MG/M2, EVERY 2 WEEKS
     Route: 042
     Dates: start: 20150505
  2. CELECOXIB OR PLACEBO [Concomitant]
     Indication: COLON CANCER
     Dosage: UNK
     Dates: start: 20150519
  3. LEUCOVORIN                         /00566702/ [Concomitant]
     Active Substance: LEUCOVORIN
     Indication: COLON CANCER
     Dosage: 400 MG/ M2 IV OVER 2 HOURS, ONCE EVERY TWO WEEKS
     Dates: start: 20150505
  4. 5-FU                               /00098802/ [Concomitant]
     Indication: COLON CANCER
     Dosage: 400 MG/M2 IV BOLUS, 2400 MG/M2 IV DRIP OVER 48 HOURS, ONCE EVERY TWO WEEKS
     Dates: start: 20150505
  5. COVERSYL [Suspect]
     Active Substance: PERINDOPRIL
     Indication: HYPERTENSION
     Dosage: UNK
     Route: 048
     Dates: start: 201410, end: 20150708

REACTIONS (4)
  - Swollen tongue [Recovered/Resolved]
  - Salivary hypersecretion [Recovered/Resolved]
  - Dysphagia [Recovered/Resolved]
  - Hypersensitivity [Recovered/Resolved]

NARRATIVE: CASE EVENT DATE: 20150708
